FAERS Safety Report 14737450 (Version 1)
Quarter: 2018Q2

REPORT INFORMATION
  Report Type: Spontaneous
  Country: US (occurrence: US)
  Receive Date: 20180404
  Receipt Date: 20180404
  Transmission Date: 20180711
  Serious: Yes (Hospitalization)
  Sender: FDA-Public Use
  Company Number: None

PATIENT
  Age: 81 Year
  Sex: Male
  Weight: 75.7 kg

DRUGS (5)
  1. METOPROLOL SUCCINATE. [Concomitant]
     Active Substance: METOPROLOL SUCCINATE
  2. LISINOPRIL. [Concomitant]
     Active Substance: LISINOPRIL
  3. ACETAMINOPHEN. [Concomitant]
     Active Substance: ACETAMINOPHEN
  4. NUVIGIL [Suspect]
     Active Substance: ARMODAFINIL
     Dates: end: 20160720
  5. LEVETIRACETAM. [Concomitant]
     Active Substance: LEVETIRACETAM

REACTIONS (7)
  - Subdural haematoma [None]
  - Disorganised speech [None]
  - Memory impairment [None]
  - Intracranial mass [None]
  - Brain midline shift [None]
  - Muscular weakness [None]
  - Aphasia [None]

NARRATIVE: CASE EVENT DATE: 20160719
